FAERS Safety Report 24157383 (Version 2)
Quarter: 2024Q3

REPORT INFORMATION
  Report Type: Report from Study
  Country: US (occurrence: US)
  Receive Date: 20240731
  Receipt Date: 20240805
  Transmission Date: 20241017
  Serious: No
  Sender: BIOGEN
  Company Number: US-BIOGEN-2024BI01275941

PATIENT
  Sex: Female

DRUGS (1)
  1. TYSABRI [Suspect]
     Active Substance: NATALIZUMAB
     Indication: Multiple sclerosis
     Route: 050
     Dates: start: 20190128

REACTIONS (11)
  - Tuberculin test positive [Unknown]
  - Eyelid naevus [Recovered/Resolved]
  - Migraine [Unknown]
  - Melanocytic naevus [Recovered/Resolved]
  - Multiple sclerosis [Unknown]
  - Asthenia [Unknown]
  - Therapeutic response shortened [Unknown]
  - Fatigue [Unknown]
  - Pruritus [Unknown]
  - Urticaria [Unknown]
  - Urinary tract infection [Unknown]
